FAERS Safety Report 5931406-7 (Version None)
Quarter: 2008Q4

REPORT INFORMATION
  Report Type: 
  Country: None (occurrence: None)
  Receive Date: 20081009
  Receipt Date: 20080630
  Transmission Date: 20090506
  Serious: Yes (Disabling)
  Sender: FDA-Public Use
  Company Number: PHEH2008US05144

PATIENT
  Age: 65 Year
  Sex: Female

DRUGS (2)
  1. ZOMETA [Suspect]
     Indication: BREAST CANCER METASTATIC
     Dosage: 4MG Q 3 WEEKS, INTRAVENOUS
     Route: 042
     Dates: start: 20050701, end: 20070201
  2. PENICILLIN-VK [Concomitant]

REACTIONS (3)
  - BONE DISORDER [None]
  - OSTEOLYSIS [None]
  - PATHOLOGICAL FRACTURE [None]
